FAERS Safety Report 13943694 (Version 4)
Quarter: 2017Q4

REPORT INFORMATION
  Report Type: Spontaneous
  Country: JP (occurrence: JP)
  Receive Date: 20170907
  Receipt Date: 20171221
  Transmission Date: 20180320
  Serious: Yes (Death, Hospitalization, Other)
  Sender: FDA-Public Use
  Company Number: JP-009507513-1708JPN001697J

PATIENT
  Age: 64 Year
  Sex: Male
  Weight: 50 kg

DRUGS (3)
  1. KEYTRUDA [Suspect]
     Active Substance: PEMBROLIZUMAB
     Indication: NON-SMALL CELL LUNG CANCER
     Dosage: 200 MG, QD
     Route: 041
     Dates: start: 20170705, end: 20170705
  2. OLMESARTAN MEDOXOMIL. [Concomitant]
     Active Substance: OLMESARTAN MEDOXOMIL
     Dosage: UNK
     Route: 048
  3. ADALAT CC [Concomitant]
     Active Substance: NIFEDIPINE
     Dosage: UNK
     Route: 048

REACTIONS (5)
  - Disseminated intravascular coagulation [Unknown]
  - Pneumonia [Unknown]
  - Malignant neoplasm progression [Fatal]
  - Adrenal insufficiency [Recovering/Resolving]
  - Interstitial lung disease [Fatal]

NARRATIVE: CASE EVENT DATE: 2017
